FAERS Safety Report 14209779 (Version 3)
Quarter: 2018Q3

REPORT INFORMATION
  Report Type: Spontaneous
  Country: US (occurrence: US)
  Receive Date: 20171121
  Receipt Date: 20180926
  Transmission Date: 20181010
  Serious: Yes (Hospitalization)
  Sender: FDA-Public Use
  Company Number: US-PFIZER INC-2017499375

PATIENT
  Age: 83 Year
  Sex: Female
  Weight: 71.67 kg

DRUGS (2)
  1. IBRANCE [Suspect]
     Active Substance: PALBOCICLIB
     Indication: TUMOUR MARKER ABNORMAL
     Dosage: 100 MG, CYCLIC (ONCE DAILY, THREE WEEKS ON, 7 DAYS OFF)
     Dates: start: 20171001
  2. IBRANCE [Suspect]
     Active Substance: PALBOCICLIB
     Dosage: 75 MG, UNK

REACTIONS (11)
  - Peripheral swelling [Recovered/Resolved]
  - Chills [Recovered/Resolved]
  - Decreased appetite [Not Recovered/Not Resolved]
  - Tremor [Recovered/Resolved]
  - Alopecia [Not Recovered/Not Resolved]
  - Fatigue [Not Recovered/Not Resolved]
  - Stomatitis [Unknown]
  - Nausea [Not Recovered/Not Resolved]
  - Glossodynia [Unknown]
  - Tumour marker abnormal [Unknown]
  - Tongue ulceration [Unknown]

NARRATIVE: CASE EVENT DATE: 20171001
